FAERS Safety Report 23883488 (Version 1)
Quarter: 2024Q2

REPORT INFORMATION
  Report Type: Spontaneous
  Country: US (occurrence: US)
  Receive Date: 20240522
  Receipt Date: 20240522
  Transmission Date: 20240715
  Serious: Yes (Life-Threatening, Hospitalization)
  Sender: FDA-Public Use
  Company Number: US-STRIDES ARCOLAB LIMITED-2024SP005873

PATIENT
  Age: 57 Year
  Sex: Female

DRUGS (4)
  1. PROPRANOLOL [Suspect]
     Active Substance: PROPRANOLOL HYDROCHLORIDE
     Indication: Product used for unknown indication
     Dosage: UNK
     Route: 065
  2. BUPROPION [Suspect]
     Active Substance: BUPROPION
     Indication: Depression
     Dosage: UNK
     Route: 065
  3. CHLORDIAZEPOXIDE [Suspect]
     Active Substance: CHLORDIAZEPOXIDE
     Indication: Seizure
     Dosage: UNK
     Route: 065
  4. ALCOHOL [Suspect]
     Active Substance: ALCOHOL
     Indication: Product used for unknown indication
     Dosage: UNK
     Route: 065

REACTIONS (10)
  - Generalised tonic-clonic seizure [Recovered/Resolved]
  - Acute kidney injury [Recovered/Resolved]
  - Renal tubular necrosis [Recovered/Resolved]
  - Coma [Recovered/Resolved]
  - Areflexia [Recovered/Resolved]
  - Cardiovascular disorder [Recovered/Resolved]
  - Cardiogenic shock [Recovered/Resolved]
  - Myocardial ischaemia [Recovered/Resolved]
  - Ejection fraction decreased [Recovered/Resolved]
  - Intentional overdose [Unknown]
